FAERS Safety Report 6785909-6 (Version None)
Quarter: 2010Q2

REPORT INFORMATION
  Report Type: 
  Country: None (occurrence: None)
  Receive Date: 20100622
  Receipt Date: 20100622
  Transmission Date: 20101027
  Serious: Yes (Other)
  Sender: FDA-Public Use
  Company Number: None

PATIENT
  Age: 3 Year
  Sex: Male
  Weight: 15 kg

DRUGS (1)
  1. SINGULAIR [Suspect]
     Indication: ASTHMA
     Dosage: ONE CHEWABLE TABLET NIGHTLY PO
     Route: 048
     Dates: start: 20100301, end: 20100601

REACTIONS (16)
  - ABNORMAL BEHAVIOUR [None]
  - AGGRESSION [None]
  - ANGER [None]
  - CONFUSIONAL STATE [None]
  - FATIGUE [None]
  - FLUID INTAKE REDUCED [None]
  - HYPOPHAGIA [None]
  - INCONTINENCE [None]
  - INITIAL INSOMNIA [None]
  - LISTLESS [None]
  - MIDDLE INSOMNIA [None]
  - MOOD SWINGS [None]
  - POOR QUALITY SLEEP [None]
  - PSYCHOMOTOR HYPERACTIVITY [None]
  - SCREAMING [None]
  - SELF INJURIOUS BEHAVIOUR [None]
